FAERS Safety Report 26138038 (Version 2)
Quarter: 2025Q4

REPORT INFORMATION
  Report Type: Spontaneous
  Country: US (occurrence: US)
  Receive Date: 20251210
  Receipt Date: 20251216
  Transmission Date: 20260117
  Serious: No
  Sender: TOLMAR
  Company Number: US-Tolmar-TLM-2025-09120

PATIENT

DRUGS (3)
  1. ELIGARD [Suspect]
     Active Substance: LEUPROLIDE ACETATE
     Indication: Prostate cancer
     Dosage: BOX LOT: 15489CUS, EXP: 03-2027.?SERIAL: 1916140941294.?GTIN: 00362935227106.?SYRINGE 1?SN: 15489AUS
  2. ELIGARD [Suspect]
     Active Substance: LEUPROLIDE ACETATE
  3. DEVICE [Suspect]
     Active Substance: DEVICE
     Indication: Prostate cancer
     Dosage: BOX LOT: 15489CUS, EXP: 03-2027.?SERIAL: 1916140941294.?GTIN: 00362935227106.?SYRINGE 1?SN: 15489AUS

REACTIONS (3)
  - Intercepted product preparation error [Unknown]
  - Device leakage [Unknown]
  - Device breakage [Unknown]
